FAERS Safety Report 7725314-9 (Version None)
Quarter: 2011Q3

REPORT INFORMATION
  Report Type: 
  Country: None (occurrence: None)
  Receive Date: 20110902
  Receipt Date: 20110825
  Transmission Date: 20111222
  Serious: Yes (Other)
  Sender: FDA-Public Use
  Company Number: US-SP-2011-07765

PATIENT
  Sex: Female

DRUGS (2)
  1. IMOVAX RABIES I.D. [Suspect]
     Indication: PRODUCT USED FOR UNKNOWN INDICATION
     Route: 030
     Dates: start: 20110823, end: 20110823
  2. IMOGAM RABIES-HT [Suspect]
     Indication: PRODUCT USED FOR UNKNOWN INDICATION
     Dosage: ALSO, GIVEN RIGHT AND LEFT HIP
     Route: 030
     Dates: start: 20110823, end: 20110823

REACTIONS (3)
  - HYPOAESTHESIA [None]
  - PHARYNGEAL OEDEMA [None]
  - PARAESTHESIA ORAL [None]
